FAERS Safety Report 6371454-9 (Version None)
Quarter: 2009Q3

REPORT INFORMATION
  Report Type: 
  Country: None (occurrence: None)
  Receive Date: 20090923
  Receipt Date: 20090724
  Transmission Date: 20100115
  Serious: Yes (Hospitalization)
  Sender: FDA-Public Use
  Company Number: US-ASTRAZENECA-2007UW14349

PATIENT
  Age: 21 Year
  Sex: Female
  Weight: 83.9 kg

DRUGS (49)
  1. SEROQUEL [Suspect]
     Indication: BIPOLAR DISORDER
     Dosage: 100-200 MG
     Route: 048
     Dates: start: 20000101, end: 20060412
  2. SEROQUEL [Suspect]
     Route: 048
     Dates: start: 20050310
  3. ABILIFY [Concomitant]
     Dates: start: 20050313, end: 20050517
  4. ACTOS [Concomitant]
  5. ALBUTEROL [Concomitant]
  6. ATIVAN [Concomitant]
  7. DILAUDID [Concomitant]
  8. DIPHENHYDRAMINE HCL [Concomitant]
  9. EFFEXOR [Concomitant]
  10. FENTANYL [Concomitant]
  11. FLAGYL [Concomitant]
  12. GEODON [Concomitant]
  13. GLUCOVANCE [Concomitant]
  14. HALOPERIDOL [Concomitant]
  15. KEPPRA [Concomitant]
  16. LAMICTAL [Concomitant]
  17. LITHIUM [Concomitant]
  18. LYRICA [Concomitant]
  19. METHYLPREDNISOLONE 4MG TAB [Concomitant]
  20. MODAFINIL [Concomitant]
  21. MORPHINE [Concomitant]
  22. NALTREXONE HYDROCHLORIDE [Concomitant]
  23. NEURONTIN [Concomitant]
  24. NEXIUM [Concomitant]
  25. NORVASC [Concomitant]
  26. NUBAIN [Concomitant]
  27. OXYCONTIN [Concomitant]
  28. PREMPRO [Concomitant]
  29. PROMETHAZINE [Concomitant]
  30. PROTONIX [Concomitant]
  31. PROVERA [Concomitant]
  32. PROZAC [Concomitant]
  33. RISPERDAL [Concomitant]
  34. ROBINUL [Concomitant]
  35. SYMBYAX [Concomitant]
  36. TEGRETOL [Concomitant]
  37. TEMAZEPAM [Concomitant]
  38. TOPAMAX [Concomitant]
  39. TORADOL [Concomitant]
  40. TRAZODONE [Concomitant]
  41. ULTRACET [Concomitant]
  42. VERSED [Concomitant]
  43. XANAX [Concomitant]
  44. ZANTAC [Concomitant]
  45. ZOFRAN [Concomitant]
  46. ZYPREXA [Concomitant]
  47. ZANTREX [Concomitant]
  48. CLOZARIL [Concomitant]
  49. THORAZINE [Concomitant]

REACTIONS (2)
  - OBESITY [None]
  - TYPE 2 DIABETES MELLITUS [None]
